FAERS Safety Report 8028726-1 (Version None)
Quarter: 2012Q1

REPORT INFORMATION
  Report Type: 
  Country: None (occurrence: None)
  Receive Date: 20120106
  Receipt Date: 20120103
  Transmission Date: 20120608
  Serious: No
  Sender: FDA-Public Use
  Company Number: US-B.I. PHARMACEUTICALS,INC./RIDGEFIELD-2012-BP-00135BP

PATIENT
  Sex: Female

DRUGS (5)
  1. ATENOLOL [Concomitant]
     Indication: HYPERTENSION
  2. ZANTAC 150 [Suspect]
     Indication: HELICOBACTER INFECTION
     Dosage: 300 MG
     Route: 048
     Dates: start: 20111224
  3. ASPIRIN [Concomitant]
     Dosage: 81 MG
     Route: 048
  4. SIMVASTATIN [Concomitant]
     Indication: BLOOD CHOLESTEROL INCREASED
  5. SYNTHROID [Concomitant]
     Indication: THYROID NEOPLASM

REACTIONS (1)
  - PRURITUS [None]
